FAERS Safety Report 4660963-6 (Version None)
Quarter: 2005Q2

REPORT INFORMATION
  Report Type: 
  Country: None (occurrence: None)
  Receive Date: 20050511
  Receipt Date: 20050427
  Transmission Date: 20051028
  Serious: Yes (Hospitalization)
  Sender: FDA-Public Use
  Company Number: 05H-163-0298795-00

PATIENT
  Sex: Female

DRUGS (1)
  1. SODIUM CHLORIDE SOLUTION (SODIUM CHLORIDE) (SODIUM CHLORIDE) [Suspect]
     Indication: ASPIRATION
     Dates: start: 20040818, end: 20040818

REACTIONS (1)
  - ARTHRITIS BACTERIAL [None]
